FAERS Safety Report 12776251 (Version 1)
Quarter: 2016Q3

REPORT INFORMATION
  Report Type: Spontaneous
  Country: JP (occurrence: JP)
  Receive Date: 20160923
  Receipt Date: 20160923
  Transmission Date: 20161109
  Serious: Yes (Other)
  Sender: FDA-Public Use
  Company Number: JP-GILEAD-2016-0233624

PATIENT
  Age: 77 Year
  Sex: Male
  Weight: 64 kg

DRUGS (3)
  1. VONOPRAZAN FUMARATE [Interacting]
     Active Substance: VONOPRAZAN FUMURATE
     Indication: GASTROINTESTINAL HAEMORRHAGE
     Dosage: 20 MG, UNK
     Route: 065
     Dates: start: 2015
  2. VONOPRAZAN FUMARATE [Interacting]
     Active Substance: VONOPRAZAN FUMURATE
     Dosage: 10 MG, UNK
     Route: 065
  3. HARVONI [Suspect]
     Active Substance: LEDIPASVIR\SOFOSBUVIR
     Indication: HEPATITIS C
     Dosage: UNK
     Route: 065
     Dates: start: 201509

REACTIONS (5)
  - Gastric antral vascular ectasia [Recovering/Resolving]
  - Inhibitory drug interaction [Unknown]
  - Gastrointestinal haemorrhage [Recovering/Resolving]
  - Hepatitis C [Unknown]
  - Drug ineffective [Unknown]
